FAERS Safety Report 19213939 (Version 1)
Quarter: 2021Q2

REPORT INFORMATION
  Report Type: Spontaneous
  Country: US (occurrence: US)
  Receive Date: 20210505
  Receipt Date: 20210505
  Transmission Date: 20210717
  Serious: No
  Sender: FDA-Public Use
  Company Number: US-NEUROCRINE BIOSCIENCES INC.-2021NBI01948

PATIENT

DRUGS (4)
  1. NUVIGIL [Concomitant]
     Active Substance: ARMODAFINIL
     Dosage: 75 MILLIGRAM
  2. INGREZZA [Suspect]
     Active Substance: VALBENAZINE
     Indication: TARDIVE DYSKINESIA
     Dosage: 40 MILLIGRAM
     Route: 048
     Dates: start: 2020
  3. INGREZZA [Suspect]
     Active Substance: VALBENAZINE
     Dosage: 80 MILLIGRAM
     Route: 048
     Dates: start: 202104
  4. RITALIN [Concomitant]
     Active Substance: METHYLPHENIDATE HYDROCHLORIDE
     Dosage: UNK

REACTIONS (3)
  - Psychological trauma [Unknown]
  - Therapeutic product effect decreased [Unknown]
  - Parkinsonism [Unknown]

NARRATIVE: CASE EVENT DATE: 20210419
